FAERS Safety Report 16447124 (Version 3)
Quarter: 2019Q2

REPORT INFORMATION
  Report Type: Spontaneous
  Country: US (occurrence: US)
  Receive Date: 20190618
  Receipt Date: 20190627
  Transmission Date: 20190711
  Serious: Yes (Other)
  Sender: FDA-Public Use
  Company Number: PHHY2019US137381

PATIENT
  Age: 68 Year
  Sex: Male

DRUGS (11)
  1. MOXIFLOXACIN. [Concomitant]
     Active Substance: MOXIFLOXACIN
     Indication: PREOPERATIVE CARE
     Route: 065
  2. OCUFEN [Concomitant]
     Active Substance: FLURBIPROFEN SODIUM
     Indication: PREOPERATIVE CARE
     Route: 065
  3. DUREZOL [Concomitant]
     Active Substance: DIFLUPREDNATE
     Indication: POSTOPERATIVE CARE
     Route: 065
  4. EPINEPHRINE. [Concomitant]
     Active Substance: EPINEPHRINE
     Indication: INTRAOPERATIVE CARE
     Route: 065
  5. CYCLOGEL [Concomitant]
     Indication: PREOPERATIVE CARE
     Route: 065
  6. BSS [Suspect]
     Active Substance: CALCIUM CHLORIDE\MAGNESIUM CHLORIDE\POTASSIUM CHLORIDE\SODIUM ACETATE\SODIUM CHLORIDE\SODIUM CITRATE
     Indication: EYE IRRIGATION
     Dosage: UNK
     Route: 031
     Dates: start: 20190528, end: 20190528
  7. POVIDONE-IODINE. [Concomitant]
     Active Substance: POVIDONE-IODINE
     Indication: PREOPERATIVE CARE
     Route: 065
  8. PHENYLEPHRINE HCL [Concomitant]
     Active Substance: PHENYLEPHRINE HYDROCHLORIDE
     Indication: PREOPERATIVE CARE
     Route: 065
  9. TROPICAMIDE. [Concomitant]
     Active Substance: TROPICAMIDE
     Indication: PREOPERATIVE CARE
     Route: 065
  10. LIDOCAINE. [Concomitant]
     Active Substance: LIDOCAINE
     Indication: INTRAOPERATIVE CARE
     Route: 065
  11. DORZOLAMIDE/TIMOLOL [Concomitant]
     Active Substance: DORZOLAMIDE\TIMOLOL
     Indication: POSTOPERATIVE CARE
     Route: 065

REACTIONS (7)
  - Wrong technique in product usage process [Unknown]
  - Eye inflammation [Recovered/Resolved]
  - Product quality issue [Unknown]
  - Aqueous fibrin [Recovered/Resolved]
  - Anterior chamber cell [Recovered/Resolved]
  - Toxic anterior segment syndrome [Recovered/Resolved]
  - Vitritis [Recovered/Resolved]

NARRATIVE: CASE EVENT DATE: 20190529
